FAERS Safety Report 9485189 (Version 1)
Quarter: 2013Q3

REPORT INFORMATION
  Report Type: Report from Study
  Country: KR (occurrence: KR)
  Receive Date: 20130828
  Receipt Date: 20130828
  Transmission Date: 20140515
  Serious: Yes (Other)
  Sender: FDA-Public Use
  Company Number: KR-B.I. PHARMACEUTICALS,INC./RIDGEFIELD-2013-BI-26024RK

PATIENT
  Age: 72 Year
  Sex: Male
  Weight: 61.9 kg

DRUGS (13)
  1. TRAJENTA [Suspect]
     Indication: TYPE 2 DIABETES MELLITUS
     Dosage: 5 MG
     Route: 048
     Dates: start: 20130801, end: 20130807
  2. PLAVIX [Concomitant]
     Indication: MYOCARDIAL ISCHAEMIA
     Dosage: 110 MG
     Route: 048
     Dates: start: 20091021
  3. ISOKET [Concomitant]
     Indication: MYOCARDIAL ISCHAEMIA
     Dosage: 80 MG
     Route: 048
     Dates: start: 20091021
  4. ALBIS [Concomitant]
     Indication: GASTRITIS
     Dosage: 1 ANZ
     Route: 048
     Dates: start: 20101010
  5. CADUET [Concomitant]
     Indication: MYOCARDIAL ISCHAEMIA
     Dosage: 1 ANZ
     Route: 048
     Dates: start: 20120109
  6. DIAMICRON [Concomitant]
     Indication: TYPE 2 DIABETES MELLITUS
     Dosage: 30 MG
     Route: 048
     Dates: start: 20130801, end: 20130801
  7. DILATREND [Concomitant]
     Indication: MYOCARDIAL ISCHAEMIA
     Dosage: 25 MG
     Route: 048
     Dates: start: 20050914
  8. TWYNSTA [Concomitant]
     Indication: HYPERTENSION
     Dosage: 1 ANZ
     Route: 048
     Dates: start: 20130124
  9. ALDACTONE FILM COATED TABLET [Concomitant]
     Indication: GLOMERULONEPHRITIS CHRONIC
     Dosage: 12.5 MG
     Route: 048
     Dates: start: 20130124
  10. ALDACTONE FILM COATED TABLET [Concomitant]
     Indication: RENAL FAILURE CHRONIC
  11. TORSEMIDE [Concomitant]
     Indication: GLOMERULONEPHRITIS CHRONIC
     Dosage: 5 MG
     Route: 048
     Dates: start: 20130606
  12. TORSEMIDE [Concomitant]
     Indication: RENAL FAILURE CHRONIC
  13. SIGMART [Concomitant]
     Indication: MYOCARDIAL ISCHAEMIA
     Dosage: 10 MG
     Route: 048
     Dates: start: 20091021

REACTIONS (4)
  - Abdominal pain upper [Recovered/Resolved]
  - Skin lesion [Recovered/Resolved]
  - Decreased appetite [Recovered/Resolved]
  - Fatigue [Recovered/Resolved]
